FAERS Safety Report 16793306 (Version 1)
Quarter: 2019Q3

REPORT INFORMATION
  Report Type: Spontaneous
  Country: TW (occurrence: TW)
  Receive Date: 20190911
  Receipt Date: 20190911
  Transmission Date: 20191005
  Serious: Yes (Death, Other)
  Sender: FDA-Public Use
  Company Number: TW-AMGEN-TWNSP2019146348

PATIENT
  Age: 47 Year
  Sex: Female

DRUGS (6)
  1. LEFLUNOMIDE. [Concomitant]
     Active Substance: LEFLUNOMIDE
     Dosage: 1 DOSAGE FORM, QD
  2. ENBREL [Suspect]
     Active Substance: ETANERCEPT
     Indication: RHEUMATOID ARTHRITIS
     Dosage: 25 MILLIGRAM, BIW
     Route: 058
     Dates: start: 20120509
  3. SULFASALAZINE. [Concomitant]
     Active Substance: SULFASALAZINE
     Dosage: 1 DOSAGE FORM,  BID
  4. CELECOXIB. [Concomitant]
     Active Substance: CELECOXIB
     Dosage: 1 DOSAGE FORM, BID
  5. TRAMACET [Concomitant]
     Active Substance: ACETAMINOPHEN\TRAMADOL
     Dosage: 1 DOSAGE FORM, QID
  6. PREDNISONE. [Concomitant]
     Active Substance: PREDNISONE
     Dosage: 2 DOSAGE FORM, QD

REACTIONS (1)
  - Completed suicide [Fatal]

NARRATIVE: CASE EVENT DATE: 201908
